FAERS Safety Report 20216587 (Version 2)
Quarter: 2022Q1

REPORT INFORMATION
  Report Type: Other
  Country: JP (occurrence: JP)
  Receive Date: 20211222
  Receipt Date: 20220103
  Transmission Date: 20220424
  Serious: Yes (Hospitalization, Other)
  Sender: FDA-Public Use
  Company Number: JP-CHUGAI-2021032600

PATIENT
  Age: 62 Year
  Sex: Female

DRUGS (1)
  1. KADCYLA [Suspect]
     Active Substance: ADO-TRASTUZUMAB EMTANSINE
     Indication: Breast cancer
     Route: 041

REACTIONS (3)
  - Non-cirrhotic portal hypertension [Recovering/Resolving]
  - Gastric varices haemorrhage [Recovered/Resolved]
  - Pneumonia [Recovered/Resolved]
